FAERS Safety Report 13615871 (Version 9)
Quarter: 2024Q1

REPORT INFORMATION
  Report Type: Spontaneous
  Country: IT (occurrence: IT)
  Receive Date: 20170606
  Receipt Date: 20240304
  Transmission Date: 20240409
  Serious: Yes (Other)
  Sender: FDA-Public Use
  Company Number: None

PATIENT
  Age: 10 Year
  Sex: Male

DRUGS (2)
  1. LEVETIRACETAM [Suspect]
     Active Substance: LEVETIRACETAM
     Indication: Epilepsy
     Dosage: 1 DOSAGE FORM, DAILY
     Route: 048
     Dates: start: 20121117, end: 20170601
  2. OXYBUTYNIN CHLORIDE [Suspect]
     Active Substance: OXYBUTYNIN CHLORIDE
     Indication: Enuresis
     Dosage: 1 DOSAGE FORM DAILY
     Route: 048

REACTIONS (2)
  - Sleep disorder [Recovering/Resolving]
  - Behaviour disorder [Recovering/Resolving]

NARRATIVE: CASE EVENT DATE: 20170522
